FAERS Safety Report 18894967 (Version 8)
Quarter: 2022Q2

REPORT INFORMATION
  Report Type: Report from Study
  Country: PE (occurrence: PE)
  Receive Date: 20210216
  Receipt Date: 20220603
  Transmission Date: 20220721
  Serious: Yes (Other)
  Sender: FDA-Public Use
  Company Number: PE-BIOGEN-2021BI00967230

PATIENT
  Sex: Female
  Weight: 73 kg

DRUGS (9)
  1. AVONEX [Suspect]
     Active Substance: INTERFERON BETA-1A
     Indication: Relapsing multiple sclerosis
     Route: 030
     Dates: start: 20021025
  2. AVONEX [Suspect]
     Active Substance: INTERFERON BETA-1A
     Route: 030
     Dates: start: 20021025
  3. AVONEX [Suspect]
     Active Substance: INTERFERON BETA-1A
  4. AVONEX [Suspect]
     Active Substance: INTERFERON BETA-1A
  5. CYCLOBENZAPRINE HYDROCHLORIDE [Suspect]
     Active Substance: CYCLOBENZAPRINE HYDROCHLORIDE
     Indication: Neck pain
     Route: 065
  6. VITAMIN E [Concomitant]
     Active Substance: .ALPHA.-TOCOPHEROL
     Indication: Neoplasm prophylaxis
     Dosage: EVERY 24 HOURS IN THE MORNING. MAY REST MONTH, RESUMES IN JUNE (3 MONTHS TAKE?AND 1-MONTH REST)
     Route: 065
     Dates: start: 202203
  7. COVID-19 Vaccine [Concomitant]
     Indication: COVID-19 prophylaxis
     Dosage: FOURTH DOSE OF THE VACCINE
     Route: 065
     Dates: start: 20220524
  8. COVID-19 Vaccine [Concomitant]
     Route: 065
  9. GABAPENTIN [Concomitant]
     Active Substance: GABAPENTIN
     Indication: Neuralgia
     Dosage: EVERY 24 HOURS AT NIGHT
     Route: 065
     Dates: start: 20220104, end: 202204

REACTIONS (8)
  - Type 2 diabetes mellitus [Not Recovered/Not Resolved]
  - Glucose tolerance impaired [Unknown]
  - Lymphopenia [Unknown]
  - Discomfort [Unknown]
  - Hypersensitivity [Recovered/Resolved]
  - Pain in extremity [Unknown]
  - Leukopenia [Unknown]
  - Myalgia [Recovered/Resolved]

NARRATIVE: CASE EVENT DATE: 20100101
